FAERS Safety Report 23367030 (Version 1)
Quarter: 2024Q1

REPORT INFORMATION
  Report Type: Spontaneous
  Country: CN (occurrence: CN)
  Receive Date: 20240104
  Receipt Date: 20240104
  Transmission Date: 20240410
  Serious: Yes (Hospitalization)
  Sender: FDA-Public Use
  Company Number: CN-SUN PHARMACEUTICAL INDUSTRIES LTD-2023R1-425989

PATIENT
  Age: 36 Year
  Sex: Female
  Weight: 68 kg

DRUGS (3)
  1. PALIPERIDONE [Suspect]
     Active Substance: PALIPERIDONE
     Indication: Antipsychotic therapy
     Dosage: 9 MILLIGRAM, QD
     Route: 048
     Dates: start: 20231117, end: 20231208
  2. PALIPERIDONE [Suspect]
     Active Substance: PALIPERIDONE
     Indication: Psychotic disorder
  3. LITHIUM CARBONATE [Concomitant]
     Active Substance: LITHIUM CARBONATE
     Indication: Mood swings
     Dosage: 0.3 GRAM, BID
     Route: 048
     Dates: start: 20231117, end: 20231222

REACTIONS (1)
  - Vision blurred [Recovering/Resolving]

NARRATIVE: CASE EVENT DATE: 20231208
